FAERS Safety Report 14307154 (Version 7)
Quarter: 2018Q4

REPORT INFORMATION
  Report Type: Other
  Country: CA (occurrence: CA)
  Receive Date: 20171220
  Receipt Date: 20181212
  Transmission Date: 20190204
  Serious: Yes (Life-Threatening, Hospitalization, Other)
  Sender: FDA-Public Use
  Company Number: CA-APOTEX-2017AP022542

PATIENT
  Age: 67 Year
  Sex: Male

DRUGS (7)
  1. CLARITHROMYCIN. [Suspect]
     Active Substance: CLARITHROMYCIN
     Indication: MYCOBACTERIAL INFECTION
     Dosage: 500 MG, BID
     Route: 048
  2. ETHAMBUTOL [Suspect]
     Active Substance: ETHAMBUTOL HYDROCHLORIDE
     Indication: PNEUMONIA
     Dosage: 1200 MG, QD
     Route: 065
  3. ETHAMBUTOL [Suspect]
     Active Substance: ETHAMBUTOL HYDROCHLORIDE
     Indication: MYCOBACTERIAL INFECTION
     Dosage: 1200 MG QD
     Route: 048
  4. CLARITHROMYCIN. [Suspect]
     Active Substance: CLARITHROMYCIN
     Indication: PNEUMONIA
     Dosage: 500 MG, BID
     Route: 048
  5. MOXIFLOXACIN. [Suspect]
     Active Substance: MOXIFLOXACIN
     Indication: PNEUMONIA
     Dosage: 400 MG, QD
     Route: 048
  6. MOXIFLOXACIN. [Suspect]
     Active Substance: MOXIFLOXACIN
     Indication: MYCOBACTERIAL INFECTION
  7. ETIBI [Suspect]
     Active Substance: ETHAMBUTOL HYDROCHLORIDE
     Indication: MYCOBACTERIAL INFECTION
     Dosage: 1200 MG, QD
     Route: 048

REACTIONS (9)
  - Night sweats [Recovered/Resolved]
  - Arthralgia [Recovered/Resolved]
  - Mycobacterial infection [Recovered/Resolved]
  - Product use in unapproved indication [Recovered/Resolved]
  - Weight decreased [Recovered/Resolved]
  - Multiple-drug resistance [Recovered/Resolved]
  - Disease progression [Recovered/Resolved]
  - Condition aggravated [Recovered/Resolved]
  - Drug resistance [Unknown]
